FAERS Safety Report 6596341-2 (Version None)
Quarter: 2010Q1

REPORT INFORMATION
  Report Type: 
  Country: None (occurrence: None)
  Receive Date: 20100223
  Receipt Date: 20100211
  Transmission Date: 20100710
  Serious: No
  Sender: FDA-Public Use
  Company Number: GB-ELI_LILLY_AND_COMPANY-GB200912002273

PATIENT
  Sex: Male
  Weight: 39 kg

DRUGS (10)
  1. BYETTA [Suspect]
     Dosage: 5 UG, UNKNOWN
     Route: 065
  2. BYETTA [Suspect]
     Dosage: 10 UG, UNKNOWN
     Route: 065
     Dates: end: 20091101
  3. BYETTA [Suspect]
     Dosage: 5 UG, UNKNOWN
     Route: 065
     Dates: end: 20091101
  4. CEPHALEXIN [Concomitant]
     Indication: URINARY TRACT INFECTION
     Dosage: 250 MG, ALTERNATING NIGHTS
  5. NITROFURANTOIN [Concomitant]
     Indication: URINARY TRACT INFECTION
     Dosage: 50 MG, ALTERNATING NIGHTS
  6. ASPIRIN [Concomitant]
     Dosage: 75 MG, UNK
     Route: 048
  7. BISOPROLOL [Concomitant]
     Dosage: 15 MG, DAILY (1/D)
     Route: 048
  8. ALLOPURINOL [Concomitant]
     Dosage: 100 MG, DAILY (1/D)
     Route: 048
  9. CANDESARTAN [Concomitant]
     Dosage: 16 MG, UNK
     Route: 048
  10. METFORMIN HCL [Concomitant]
     Dosage: 2 G, DAILY (1/D) AT TEA

REACTIONS (2)
  - BLOOD GLUCOSE INCREASED [None]
  - TACHYCARDIA [None]
